FAERS Safety Report 9789836 (Version 1)
Quarter: 2013Q4

REPORT INFORMATION
  Report Type: Spontaneous
  Country: ES (occurrence: None)
  Receive Date: 20131227
  Receipt Date: 20131227
  Transmission Date: 20140711
  Serious: Yes (Other)
  Sender: FDA-Public Use
  Company Number: 7258235

PATIENT
  Age: 3 Month
  Sex: Male

DRUGS (1)
  1. L-THYROXINE (LEVOTHYROXINE-SODIUM) [Suspect]
     Indication: HYPOTHYROIDISM

REACTIONS (10)
  - Calcinosis [None]
  - Renal impairment [None]
  - Macroglossia [None]
  - Hydronephrosis [None]
  - Caesarean section [None]
  - Hypoglycaemia neonatal [None]
  - Respiratory distress [None]
  - Hypothyroidism [None]
  - Skin disorder [None]
  - Congenital musculoskeletal anomaly [None]
